FAERS Safety Report 5597816-5 (Version None)
Quarter: 2007Q4

REPORT INFORMATION
  Report Type: 
  Country: None (occurrence: None)
  Receive Date: 20071221
  Receipt Date: 20070816
  Transmission Date: 20080405
  Serious: Yes (Hospitalization, Other)
  Sender: FDA-Public Use
  Company Number: US200707006616

PATIENT
  Age: 37 Year
  Sex: Female

DRUGS (1)
  1. HUMALOG [Suspect]
     Dosage: SUBCUTANEOUS
     Route: 058
     Dates: start: 19970101

REACTIONS (2)
  - BLOOD GLUCOSE INCREASED [None]
  - VOMITING [None]
